FAERS Safety Report 4714028-5 (Version None)
Quarter: 2005Q3

REPORT INFORMATION
  Report Type: 
  Country: None (occurrence: None)
  Receive Date: 20050714
  Receipt Date: 20050308
  Transmission Date: 20060218
  Serious: Yes (Hospitalization)
  Sender: FDA-Public Use
  Company Number: PHNU2005DE01272

PATIENT
  Age: 3 Year
  Sex: Male
  Weight: 19 kg

DRUGS (1)
  1. LEPONEX / CLOZARIL (CLOZAPINE) [Suspect]
     Indication: ACCIDENTAL EXPOSURE
     Dosage: 75 MG, ONCE/SINGLE
     Route: 048
     Dates: start: 20050308, end: 20050308

REACTIONS (4)
  - ACCIDENTAL EXPOSURE [None]
  - LETHARGY [None]
  - PALLOR [None]
  - SOMNOLENCE [None]
